FAERS Safety Report 20946843 (Version 1)
Quarter: 2022Q2

REPORT INFORMATION
  Report Type: Spontaneous
  Country: DK (occurrence: DK)
  Receive Date: 20220610
  Receipt Date: 20220610
  Transmission Date: 20220721
  Serious: Yes (Death, Hospitalization, Other)
  Sender: FDA-Public Use
  Company Number: None

PATIENT
  Age: 77 Year
  Sex: Female

DRUGS (3)
  1. CYCLOPHOSPHAMIDE [Suspect]
     Active Substance: CYCLOPHOSPHAMIDE
     Indication: Glomerulonephritis rapidly progressive
     Dosage: DOSAGE AND STRENGTH: UNKNOWN
     Route: 065
     Dates: start: 20171221, end: 201803
  2. PREDNISOLONE [Concomitant]
     Active Substance: PREDNISOLONE
     Indication: Glomerulonephritis rapidly progressive
     Route: 065
     Dates: start: 201712
  3. SULFAMETHIZOLE [Concomitant]
     Active Substance: SULFAMETHIZOLE
     Indication: Glomerulonephritis rapidly progressive
     Route: 065
     Dates: start: 201801

REACTIONS (9)
  - General physical health deterioration [Fatal]
  - Pneumonia [Fatal]
  - Wound [Fatal]
  - Stevens-Johnson syndrome [Fatal]
  - Dermatitis [Fatal]
  - Toxic epidermal necrolysis [Fatal]
  - Infection [Fatal]
  - Rash [Fatal]
  - Sepsis [Fatal]

NARRATIVE: CASE EVENT DATE: 20180301
